FAERS Safety Report 9723498 (Version 1)
Quarter: 2013Q4

REPORT INFORMATION
  Report Type: Report from Study
  Country: NL (occurrence: NL)
  Receive Date: 20131202
  Receipt Date: 20131202
  Transmission Date: 20140711
  Serious: Yes (Hospitalization)
  Sender: FDA-Public Use
  Company Number: NL-GILEAD-2013-0088523

PATIENT
  Age: 26 Year
  Sex: Female

DRUGS (2)
  1. AZTREONAM LYSINE [Suspect]
     Indication: CYSTIC FIBROSIS
     Dosage: UNK
     Dates: start: 2012
  2. AZTREONAM LYSINE [Suspect]
     Indication: PSEUDOMONAS INFECTION

REACTIONS (1)
  - Infection [Unknown]
